FAERS Safety Report 23032451 (Version 1)
Quarter: 2023Q4

REPORT INFORMATION
  Report Type: Spontaneous
  Country: RU (occurrence: None)
  Receive Date: 20231005
  Receipt Date: 20231005
  Transmission Date: 20240109
  Serious: Yes (Hospitalization)
  Sender: FDA-Public Use
  Company Number: RU-Eisai Medical Research-EC-2023-150039

PATIENT
  Age: 61 Year
  Sex: Male

DRUGS (2)
  1. LENVIMA [Suspect]
     Active Substance: LENVATINIB
     Indication: Renal cell carcinoma
     Route: 048
     Dates: start: 202003
  2. EVEROLIMUS [Concomitant]
     Active Substance: EVEROLIMUS
     Indication: Renal cell carcinoma
     Dosage: FREQUENCY UNKNOWN
     Route: 065
     Dates: start: 202003

REACTIONS (2)
  - Pathological fracture [Recovered/Resolved with Sequelae]
  - Abscess [Recovered/Resolved with Sequelae]

NARRATIVE: CASE EVENT DATE: 20210401
